FAERS Safety Report 19206242 (Version 1)
Quarter: 2021Q2

REPORT INFORMATION
  Report Type: Spontaneous
  Country: CN (occurrence: CN)
  Receive Date: 20210503
  Receipt Date: 20210503
  Transmission Date: 20210717
  Serious: Yes (Other)
  Sender: FDA-Public Use
  Company Number: CN-PFIZER INC-2021457153

PATIENT
  Age: 85 Year
  Sex: Female
  Weight: 50 kg

DRUGS (1)
  1. DIFLUCAN [Suspect]
     Active Substance: FLUCONAZOLE
     Indication: FUNGAL INFECTION
     Dosage: 0.200 G, 1X/DAY
     Route: 041
     Dates: start: 20210402, end: 20210410

REACTIONS (4)
  - Liver injury [Recovering/Resolving]
  - Transaminases increased [Recovering/Resolving]
  - Cardiac failure [Unknown]
  - Congestive hepatopathy [Unknown]

NARRATIVE: CASE EVENT DATE: 20210406
